FAERS Safety Report 22055072 (Version 1)
Quarter: 2023Q1

REPORT INFORMATION
  Report Type: Spontaneous
  Country: US (occurrence: None)
  Receive Date: 20230301
  Receipt Date: 20230301
  Transmission Date: 20230417
  Serious: No
  Sender: FDA-Public Use
  Company Number: None

PATIENT
  Age: 54 Year

DRUGS (1)
  1. LEVOTHYROXINE [Suspect]
     Active Substance: LEVOTHYROXINE

REACTIONS (6)
  - Hypothyroidism [None]
  - Hyperthyroidism [None]
  - Joint swelling [None]
  - Urticaria [None]
  - Reaction to azo-dyes [None]
  - Allergic reaction to excipient [None]

NARRATIVE: CASE EVENT DATE: 20230301
